FAERS Safety Report 13986941 (Version 15)
Quarter: 2021Q1

REPORT INFORMATION
  Report Type: Report from Study
  Country: FR (occurrence: FR)
  Receive Date: 20170919
  Receipt Date: 20210227
  Transmission Date: 20210419
  Serious: Yes (Death, Hospitalization, Other)
  Sender: FDA-Public Use
  Company Number: FR-BRISTOL-MYERS SQUIBB COMPANY-BMS-2017-024485

PATIENT
  Age: 70 Year
  Sex: Male

DRUGS (4)
  1. NIVOLUMAB [Suspect]
     Active Substance: NIVOLUMAB
     Indication: LUNG NEOPLASM MALIGNANT
     Dosage: 276 MILLIGRAM, Q2WK
     Route: 042
     Dates: start: 20170302, end: 20170821
  2. OROZAMUDOL [Concomitant]
     Active Substance: TRAMADOL
     Indication: PAIN
     Dosage: 50 UNK
     Route: 065
     Dates: start: 20170316
  3. TRAMADOL. [Suspect]
     Active Substance: TRAMADOL
     Indication: TENDON DISORDER
     Dosage: 100 MILLIGRAM
     Route: 065
     Dates: start: 20170315
  4. TRAMADOL. [Suspect]
     Active Substance: TRAMADOL
     Dosage: 50 MILLIGRAM
     Route: 065
     Dates: start: 20170316, end: 20170316

REACTIONS (7)
  - Malaise [Recovered/Resolved]
  - Tendon disorder [Not Recovered/Not Resolved]
  - General physical health deterioration [Fatal]
  - Malignant neoplasm progression [Fatal]
  - Syncope [Recovered/Resolved]
  - Asthenia [Not Recovered/Not Resolved]
  - Prescribed overdose [Unknown]

NARRATIVE: CASE EVENT DATE: 20170306
